FAERS Safety Report 18982017 (Version 4)
Quarter: 2022Q2

REPORT INFORMATION
  Report Type: Spontaneous
  Country: US (occurrence: US)
  Receive Date: 20210308
  Receipt Date: 20220405
  Transmission Date: 20220721
  Serious: Yes (Hospitalization, Other)
  Sender: FDA-Public Use
  Company Number: US-PURDUE PHARMA-USA-2020-0193711

PATIENT
  Sex: Female

DRUGS (9)
  1. OXYCONTIN [Suspect]
     Active Substance: OXYCODONE HYDROCHLORIDE
     Indication: Pain
     Dosage: UNK
     Route: 048
     Dates: start: 2007
  2. OXYCONTIN [Suspect]
     Active Substance: OXYCODONE HYDROCHLORIDE
     Indication: Intervertebral disc degeneration
     Dosage: 30 MG, Q12H
     Route: 048
     Dates: start: 201301, end: 201910
  3. OXYCONTIN [Suspect]
     Active Substance: OXYCODONE HYDROCHLORIDE
     Indication: Back pain
     Dosage: 15 MG, Q12H
     Route: 048
     Dates: start: 201910, end: 202101
  4. OXYCONTIN [Suspect]
     Active Substance: OXYCODONE HYDROCHLORIDE
     Indication: Back pain
     Dosage: 15 MG, Q48H
     Route: 048
     Dates: start: 202101
  5. OXYCONTIN [Suspect]
     Active Substance: OXYCODONE HYDROCHLORIDE
     Dosage: UNK MG, UNK
     Route: 048
     Dates: start: 20210210
  6. OXYCONTIN [Suspect]
     Active Substance: OXYCODONE HYDROCHLORIDE
     Dosage: 20 MG, Q12H
     Route: 048
     Dates: start: 2012, end: 202101
  7. OXYCONTIN [Suspect]
     Active Substance: OXYCODONE HYDROCHLORIDE
     Dosage: 20 MG/HR, DAILY
     Route: 048
     Dates: start: 2013, end: 20210220
  8. OXYCODONE [Concomitant]
     Active Substance: OXYCODONE
     Indication: Back pain
     Dosage: 10 MG, PRN
     Route: 048
     Dates: start: 202103
  9. MORPHINE [Concomitant]
     Active Substance: MORPHINE
     Indication: Back pain
     Dosage: 30 MG, Q12H
     Route: 048
     Dates: start: 202201

REACTIONS (12)
  - Hypertensive urgency [Unknown]
  - Symptom masked [Recovered/Resolved]
  - Pancreatic steatosis [Unknown]
  - Hepatic steatosis [Unknown]
  - Emotional distress [Unknown]
  - Sedation [Unknown]
  - Gastrointestinal disorder [Recovered/Resolved]
  - Decreased appetite [Recovered/Resolved]
  - Malaise [Unknown]
  - Hyperhidrosis [Recovered/Resolved]
  - Abdominal pain [Recovered/Resolved]
  - Judgement impaired [Recovered/Resolved]

NARRATIVE: CASE EVENT DATE: 20180101
